FAERS Safety Report 10223660 (Version 1)
Quarter: 2014Q2

REPORT INFORMATION
  Report Type: Spontaneous
  Country: US (occurrence: US)
  Receive Date: 20140609
  Receipt Date: 20140609
  Transmission Date: 20141212
  Serious: No
  Sender: FDA-Public Use
  Company Number: US-DRREDDYS-USA/USA/14/0038100

PATIENT
  Age: 47 Year
  Sex: Female
  Weight: 55.3 kg

DRUGS (3)
  1. FEXOFENADINE HCL  OTC [Suspect]
     Indication: HYPERSENSITIVITY
     Dosage: 1/4 TABLET IN THE MORNING AND 1/4 TABLET 8 HOURS LATER DAILY
     Route: 048
     Dates: start: 20140207, end: 20140211
  2. BACTRIM [Concomitant]
     Indication: PRODUCT USED FOR UNKNOWN INDICATION
     Route: 065
  3. BACTRIM [Concomitant]
     Indication: PRODUCT USED FOR UNKNOWN INDICATION

REACTIONS (6)
  - Tachycardia [Not Recovered/Not Resolved]
  - Feeling abnormal [Not Recovered/Not Resolved]
  - Tendonitis [Not Recovered/Not Resolved]
  - Dehydration [Not Recovered/Not Resolved]
  - Insomnia [Not Recovered/Not Resolved]
  - Wrong technique in drug usage process [Unknown]
